FAERS Safety Report 22290390 (Version 12)
Quarter: 2024Q4

REPORT INFORMATION
  Report Type: Report from Study
  Country: US (occurrence: US)
  Receive Date: 20230505
  Receipt Date: 20241120
  Transmission Date: 20250114
  Serious: Yes (Other)
  Sender: VERTEX
  Company Number: US-VERTEX PHARMACEUTICALS-2023-005217

PATIENT
  Age: 9 Year
  Sex: Female
  Weight: 41 kg

DRUGS (20)
  1. TRIKAFTA [Suspect]
     Active Substance: ELEXACAFTOR\IVACAFTOR\TEZACAFTOR
     Indication: Cystic fibrosis
     Dosage: LOW DOSE; 2 TABS (ELEXA 50 MG/TEZA 25 MG/IVA 37.5 MG) IN AM AND 1 TAB (IVA 75 MG) IN PM
     Route: 048
     Dates: start: 20210816, end: 20230127
  2. TRIKAFTA [Suspect]
     Active Substance: ELEXACAFTOR\IVACAFTOR\TEZACAFTOR
     Dosage: HIGH DOSE; (ELEXA 100 MG/TEZA 50 MG/IVA 75 MG) IN AM AND 1 TAB (IVA 150 MG) IN PM
     Route: 048
     Dates: start: 20230127, end: 2023
  3. TRIKAFTA [Suspect]
     Active Substance: ELEXACAFTOR\IVACAFTOR\TEZACAFTOR
     Dosage: HIGH DOSE (ELEX100 MG/TEZA 50 MG/IVA 75 MG) WITHOUT PM DOSE
     Route: 048
     Dates: start: 20230211, end: 20230225
  4. TRIKAFTA [Suspect]
     Active Substance: ELEXACAFTOR\IVACAFTOR\TEZACAFTOR
     Dosage: UNKNOWN DOSE
     Route: 048
     Dates: start: 202304, end: 20230613
  5. TRIKAFTA [Suspect]
     Active Substance: ELEXACAFTOR\IVACAFTOR\TEZACAFTOR
     Dosage: HIGHER DOSE (100MG ELEXACAFTOR/50MG TEZACAFTOR/75MG IVACAFTOR), 2 TABLETS IN AM
     Route: 048
     Dates: start: 20230425, end: 20230515
  6. TRIKAFTA [Suspect]
     Active Substance: ELEXACAFTOR\IVACAFTOR\TEZACAFTOR
     Dosage: 1 TAB AM
     Route: 048
     Dates: start: 20230623, end: 2023
  7. TRIKAFTA [Suspect]
     Active Substance: ELEXACAFTOR\IVACAFTOR\TEZACAFTOR
     Dosage: 2 TABLETS IN AM
     Route: 048
     Dates: start: 20230705, end: 20230808
  8. TRIKAFTA [Suspect]
     Active Substance: ELEXACAFTOR\IVACAFTOR\TEZACAFTOR
     Dosage: LOWER DOSE (TWO TABLETS (50MG ELEXACAFTOR/25 MG TEZACAFTOR/37.5MG IVACAFTOR) IN MORNING AND ONE TABL
     Route: 048
     Dates: start: 20230809, end: 20241022
  9. FLUTICASONE PROPIONATE [Concomitant]
     Active Substance: FLUTICASONE PROPIONATE
  10. ALBUTEROL SULFATE [Concomitant]
     Active Substance: ALBUTEROL SULFATE
     Dosage: 2.5MG/3ML
     Route: 055
  11. CETIRIZINE HCL [Concomitant]
     Active Substance: CETIRIZINE HYDROCHLORIDE
  12. CREON [Concomitant]
     Active Substance: PANCRELIPASE AMYLASE\PANCRELIPASE LIPASE\PANCRELIPASE PROTEASE
     Dosage: 6K-19K-30K
  13. CREON [Concomitant]
     Active Substance: PANCRELIPASE AMYLASE\PANCRELIPASE LIPASE\PANCRELIPASE PROTEASE
     Dosage: 36000UNIT
  14. ALBUTEROL SULFATE [Concomitant]
     Active Substance: ALBUTEROL SULFATE
  15. PREVACID [Concomitant]
     Active Substance: LANSOPRAZOLE
  16. OMEPRAZOLE [Concomitant]
     Active Substance: OMEPRAZOLE
  17. CULTURELLE [Concomitant]
     Active Substance: LACTOBACILLUS RHAMNOSUS
  18. URSODIOL [Concomitant]
     Active Substance: URSODIOL
  19. ZYRTEC [Concomitant]
     Active Substance: CETIRIZINE HYDROCHLORIDE
  20. ACTIGALL [Concomitant]
     Active Substance: URSODIOL
     Dosage: UNK, QD
     Dates: start: 20180426

REACTIONS (8)
  - Gamma-glutamyltransferase increased [Not Recovered/Not Resolved]
  - Aspartate aminotransferase increased [Recovering/Resolving]
  - Alanine aminotransferase increased [Recovering/Resolving]
  - Hepatic fibrosis [Recovered/Resolved]
  - Jaundice hepatocellular [Not Recovered/Not Resolved]
  - Decreased appetite [Not Recovered/Not Resolved]
  - Chromaturia [Not Recovered/Not Resolved]
  - Abdominal pain [Not Recovered/Not Resolved]

NARRATIVE: CASE EVENT DATE: 20230201
